FAERS Safety Report 9152928 (Version 1)
Quarter: 2013Q1

REPORT INFORMATION
  Report Type: Spontaneous
  Country: CA (occurrence: CA)
  Receive Date: 20130307
  Receipt Date: 20130307
  Transmission Date: 20140127
  Serious: Yes (Other)
  Sender: FDA-Public Use
  Company Number: CA-RB-050597-13

PATIENT
  Age: 44 Year
  Sex: Female

DRUGS (3)
  1. SUBOXONE TABLET [Suspect]
     Route: 060
     Dates: start: 2012, end: 2012
  2. SUBOXONE TABLET [Suspect]
     Indication: DRUG DEPENDENCE
     Route: 060
     Dates: start: 2012
  3. UNKNOWN SLEEPING PILL [Concomitant]
     Indication: SLEEP DISORDER
     Dosage: DOSING DETAILS UNKNOWN
     Route: 048

REACTIONS (1)
  - Breast cancer [Not Recovered/Not Resolved]
